FAERS Safety Report 4313252-3 (Version None)
Quarter: 2004Q1

REPORT INFORMATION
  Report Type: 
  Country: None (occurrence: None)
  Receive Date: 20040227
  Receipt Date: 20040213
  Transmission Date: 20041129
  Serious: Yes (Other)
  Sender: FDA-Public Use
  Company Number: IGH/04/04/LIT

PATIENT
  Age: 42 Year
  Sex: Male

DRUGS (2)
  1. IMMUNE GLOBULIN INTRAVENOUS (HUMAN) [Suspect]
     Indication: SYSTEMIC LUPUS ERYTHEMATOSUS
     Dosage: 1 G, I.V.
     Route: 042
  2. PREDNISOLONE [Concomitant]

REACTIONS (1)
  - CUTANEOUS VASCULITIS [None]
